FAERS Safety Report 15156396 (Version 2)
Quarter: 2018Q3

REPORT INFORMATION
  Report Type: Report from Study
  Country: US (occurrence: US)
  Receive Date: 20180717
  Receipt Date: 20180809
  Transmission Date: 20181010
  Serious: Yes (Hospitalization)
  Sender: FDA-Public Use
  Company Number: US-BIOMARINAP-US-2018-119040

PATIENT
  Age: 31 Year
  Sex: Female
  Weight: 48 kg

DRUGS (3)
  1. KUVAN [Suspect]
     Active Substance: SAPROPTERIN DIHYDROCHLORIDE
     Indication: PHENYLKETONURIA
     Dosage: 1000 MG, QD
     Route: 048
     Dates: start: 20180603
  2. PRENATAL VITAMINS                  /01549301/ [Concomitant]
     Active Substance: VITAMINS
     Indication: PREGNANCY
     Dosage: UNK UNK, QD
     Route: 048
     Dates: start: 201807
  3. ZOFRAN [Concomitant]
     Active Substance: ONDANSETRON HYDROCHLORIDE
     Indication: NAUSEA
     Dosage: 8 MG, BID
     Route: 048
     Dates: start: 20180706

REACTIONS (2)
  - Maternal exposure during pregnancy [Unknown]
  - Amino acid level increased [Recovered/Resolved]

NARRATIVE: CASE EVENT DATE: 20180710
